FAERS Safety Report 18050644 (Version 4)
Quarter: 2022Q4

REPORT INFORMATION
  Report Type: Spontaneous
  Country: US (occurrence: US)
  Receive Date: 20200721
  Receipt Date: 20221207
  Transmission Date: 20230113
  Serious: No
  Sender: FDA-Public Use
  Company Number: US-VERTEX PHARMACEUTICALS-2020-014209

PATIENT
  Sex: Female
  Weight: 49 kg

DRUGS (1)
  1. TRIKAFTA [Suspect]
     Active Substance: ELEXACAFTOR\IVACAFTOR\TEZACAFTOR
     Indication: Cystic fibrosis
     Dosage: TRADITIONAL DOSING, 2 ORANGE TABS AM, 1 BLUE TAB PM
     Route: 048
     Dates: start: 20200617, end: 20200818

REACTIONS (7)
  - Sinus pain [Recovered/Resolved]
  - Arthralgia [Recovered/Resolved]
  - Nausea [Recovering/Resolving]
  - Cough [Recovered/Resolved]
  - Headache [Recovering/Resolving]
  - Decreased appetite [Unknown]
  - Sinus disorder [Not Recovered/Not Resolved]

NARRATIVE: CASE EVENT DATE: 20200101
